FAERS Safety Report 15486492 (Version 1)
Quarter: 2018Q4

REPORT INFORMATION
  Report Type: Spontaneous
  Country: JP (occurrence: JP)
  Receive Date: 20181011
  Receipt Date: 20181011
  Transmission Date: 20190205
  Serious: Yes (Other)
  Sender: FDA-Public Use
  Company Number: JP-AMGEN-JPNSP2018141841

PATIENT
  Age: 71 Year
  Sex: Male

DRUGS (3)
  1. RANMARK [Suspect]
     Active Substance: DENOSUMAB
     Indication: METASTASES TO BONE
     Dosage: UNK
     Route: 065
  2. DOCETAXEL. [Suspect]
     Active Substance: DOCETAXEL
     Indication: METASTASIS
  3. DOCETAXEL. [Suspect]
     Active Substance: DOCETAXEL
     Indication: PROSTATIC SPECIFIC ANTIGEN INCREASED
     Dosage: UNK
     Route: 065
     Dates: start: 201711

REACTIONS (2)
  - Brain abscess [Recovering/Resolving]
  - Liver abscess [Recovering/Resolving]
